FAERS Safety Report 8174628-X (Version None)
Quarter: 2012Q1

REPORT INFORMATION
  Report Type: 
  Country: None (occurrence: None)
  Receive Date: 20120229
  Receipt Date: 20120222
  Transmission Date: 20120608
  Serious: Yes (Hospitalization)
  Sender: FDA-Public Use
  Company Number: US-VERTEX PHARMACEUTICALS INC.-AE-2012-002040

PATIENT
  Sex: Male

DRUGS (8)
  1. RIBAVIRIN [Concomitant]
     Indication: HEPATITIS C
  2. LISINOPRIL [Concomitant]
  3. CYCLOBENZAPRINE [Concomitant]
  4. PEGASYS [Concomitant]
     Indication: HEPATITIS C
  5. LORAZEPAM [Concomitant]
  6. INCIVEK [Suspect]
     Indication: HEPATITIS C
     Route: 048
  7. FLOMAX [Concomitant]
  8. TRAMADOL HCL [Concomitant]

REACTIONS (3)
  - RASH [None]
  - PRURITUS [None]
  - ANXIETY [None]
